FAERS Safety Report 25849713 (Version 2)
Quarter: 2025Q4

REPORT INFORMATION
  Report Type: Report from Study
  Country: CA (occurrence: CA)
  Receive Date: 20250926
  Receipt Date: 20251008
  Transmission Date: 20260118
  Serious: Yes (Life-Threatening, Hospitalization, Disabling, Other)
  Sender: CELLTRION
  Company Number: CA-CELLTRION INC.-2025CA033758

PATIENT

DRUGS (5)
  1. USTEKINUMAB [Suspect]
     Active Substance: USTEKINUMAB
     Indication: Crohn^s disease
     Dosage: 90 MG EVERY 4 WEEKS
     Route: 058
     Dates: start: 20250402
  2. USTEKINUMAB [Suspect]
     Active Substance: USTEKINUMAB
     Dosage: 90 MG EVERY 4 WEEKS
     Route: 058
     Dates: start: 20250430
  3. USTEKINUMAB [Suspect]
     Active Substance: USTEKINUMAB
     Dosage: 90 MG EVERY 4 WEEKS
     Route: 058
     Dates: start: 20250528
  4. USTEKINUMAB [Suspect]
     Active Substance: USTEKINUMAB
     Dosage: 90 MG EVERY 4 WEEKS
     Route: 058
     Dates: start: 20250728
  5. USTEKINUMAB [Suspect]
     Active Substance: USTEKINUMAB
     Dosage: 90 MG EVERY 4 WEEKS
     Route: 058
     Dates: start: 20250825

REACTIONS (6)
  - Myocardial infarction [Unknown]
  - Renal vascular thrombosis [Unknown]
  - Pulmonary thrombosis [Unknown]
  - Intentional product use issue [Unknown]
  - Intentional dose omission [Unknown]
  - Inappropriate schedule of product administration [Unknown]

NARRATIVE: CASE EVENT DATE: 20250914
